FAERS Safety Report 10687334 (Version 1)
Quarter: 2014Q4

REPORT INFORMATION
  Report Type: Spontaneous
  Country: US (occurrence: None)
  Receive Date: 20141231
  Receipt Date: 20141231
  Transmission Date: 20150529
  Serious: Yes (Hospitalization)
  Sender: FDA-Public Use
  Company Number: None

PATIENT
  Age: 66 Year
  Sex: Male
  Weight: 77.6 kg

DRUGS (1)
  1. RIVAROXABAN [Suspect]
     Active Substance: RIVAROXABAN
     Indication: PULMONARY EMBOLISM
     Route: 048
     Dates: start: 20130328, end: 20141217

REACTIONS (12)
  - Asthenia [None]
  - Dyspnoea [None]
  - Constipation [None]
  - Chills [None]
  - Dizziness [None]
  - Abdominal pain upper [None]
  - Tremor [None]
  - Subdural haematoma [None]
  - Diarrhoea [None]
  - Abasia [None]
  - Dysstasia [None]
  - Headache [None]

NARRATIVE: CASE EVENT DATE: 20141217
